FAERS Safety Report 4617611-0 (Version None)
Quarter: 2005Q1

REPORT INFORMATION
  Report Type: 
  Country: None (occurrence: None)
  Receive Date: 20050324
  Receipt Date: 20050308
  Transmission Date: 20050727
  Serious: Yes (Death, Hospitalization)
  Sender: FDA-Public Use
  Company Number: DE-MERCK-0503USA01229

PATIENT
  Age: 86 Year
  Sex: Male

DRUGS (4)
  1. HYDRODIURIL [Suspect]
     Indication: HYPERTENSION
     Route: 048
  2. MIDAMOR [Suspect]
     Indication: HYPERTENSION
     Route: 048
  3. BLOCADREN [Suspect]
     Indication: HYPERTENSION
     Route: 048
  4. TRANDOLAPRIL [Suspect]
     Indication: HYPERTENSION
     Route: 065

REACTIONS (5)
  - BLOOD CREATININE INCREASED [None]
  - CREATININE RENAL CLEARANCE DECREASED [None]
  - DEHYDRATION [None]
  - MULTIPLE DRUG OVERDOSE [None]
  - RENAL IMPAIRMENT [None]
